FAERS Safety Report 18975836 (Version 1)
Quarter: 2021Q1

REPORT INFORMATION
  Report Type: Spontaneous
  Country: NZ (occurrence: NZ)
  Receive Date: 20210306
  Receipt Date: 20210306
  Transmission Date: 20210420
  Serious: Yes (Other)
  Sender: FDA-Public Use
  Company Number: NZ-ASTRAZENECA-2021A083909

PATIENT
  Sex: Female

DRUGS (2)
  1. IBRANCE [Suspect]
     Active Substance: PALBOCICLIB
     Route: 048
  2. FULVESTRANT. [Suspect]
     Active Substance: FULVESTRANT
     Route: 030

REACTIONS (5)
  - Malignant neoplasm progression [Recovering/Resolving]
  - Fatigue [Unknown]
  - Insomnia [Unknown]
  - Injection site pain [Unknown]
  - Premature menopause [Unknown]

NARRATIVE: CASE EVENT DATE: 202011
